FAERS Safety Report 4772415-3 (Version None)
Quarter: 2005Q3

REPORT INFORMATION
  Report Type: 
  Country: None (occurrence: None)
  Receive Date: 20050919
  Receipt Date: 20050907
  Transmission Date: 20060218
  Serious: Yes (Other)
  Sender: FDA-Public Use
  Company Number: AR-JNJFOC-20050902222

PATIENT
  Age: 38 Year
  Sex: Female
  Weight: 65 kg

DRUGS (17)
  1. REMICADE [Suspect]
     Route: 042
  2. REMICADE [Suspect]
     Route: 042
  3. REMICADE [Suspect]
     Indication: RHEUMATOID ARTHRITIS
     Route: 042
  4. METHOTREXATE [Concomitant]
     Route: 030
  5. METHOTREXATE [Concomitant]
     Route: 048
  6. FOLIC ACID [Concomitant]
  7. NAPROXENE [Concomitant]
     Dosage: 2-3 PER WEEK
  8. AZACORTID [Concomitant]
  9. PCT [Concomitant]
  10. PCT [Concomitant]
  11. PCT [Concomitant]
     Indication: PREMEDICATION
  12. BENADRYL [Concomitant]
  13. BENADRYL [Concomitant]
  14. BENADRYL [Concomitant]
     Indication: PREMEDICATION
  15. DIPHENHYDRAMINE HCL [Concomitant]
  16. DIPHENHYDRAMINE HCL [Concomitant]
  17. DIPHENHYDRAMINE HCL [Concomitant]
     Indication: PREMEDICATION

REACTIONS (4)
  - PAIN [None]
  - PARAESTHESIA [None]
  - PRURITUS [None]
  - RASH [None]
